APPROVED DRUG PRODUCT: LEVOLET
Active Ingredient: LEVOTHYROXINE SODIUM
Strength: 0.025MG **See current Annual Edition, 1.8 Description of Special Situations, Levothyroxine Sodium
Dosage Form/Route: TABLET;ORAL
Application: N021137 | Product #001 | TE Code: AB1,AB2,AB3,AB4
Applicant: GENUS LIFE SCIENCES INC
Approved: Jun 6, 2003 | RLD: No | RS: No | Type: RX